FAERS Safety Report 20719820 (Version 1)
Quarter: 2022Q2

REPORT INFORMATION
  Report Type: Spontaneous
  Country: CA (occurrence: CA)
  Receive Date: 20220418
  Receipt Date: 20220418
  Transmission Date: 20220721
  Serious: Yes (Death)
  Sender: FDA-Public Use
  Company Number: CA-SA-2019SA153022

PATIENT
  Age: 78 Year
  Sex: Male
  Weight: 90 kg

DRUGS (13)
  1. DOCETAXEL [Suspect]
     Active Substance: DOCETAXEL
     Indication: Prostate cancer
     Dosage: 152 MG, Q3W
     Route: 042
     Dates: start: 2018
  2. CELECOXIB [Concomitant]
     Active Substance: CELECOXIB
  3. CELECOXIB [Concomitant]
     Active Substance: CELECOXIB
  4. DEXAMETHASONE [Concomitant]
     Active Substance: DEXAMETHASONE
  5. DEXAMETHASONE [Concomitant]
     Active Substance: DEXAMETHASONE
  6. FIRMAGON [Concomitant]
     Active Substance: DEGARELIX ACETATE
  7. FIRMAGON [Concomitant]
     Active Substance: DEGARELIX ACETATE
  8. METFORMIN [Concomitant]
     Active Substance: METFORMIN HYDROCHLORIDE
  9. METFORMIN [Concomitant]
     Active Substance: METFORMIN HYDROCHLORIDE
  10. RAMIPRIL [Concomitant]
     Active Substance: RAMIPRIL
  11. RAMIPRIL [Concomitant]
     Active Substance: RAMIPRIL
  12. ROSUVASTATIN [Concomitant]
     Active Substance: ROSUVASTATIN
  13. ROSUVASTATIN [Concomitant]
     Active Substance: ROSUVASTATIN

REACTIONS (4)
  - Febrile neutropenia [Fatal]
  - Pneumonia [Fatal]
  - Pneumonitis [Fatal]
  - Respiratory failure [Fatal]
